FAERS Safety Report 14304649 (Version 1)
Quarter: 2017Q4

REPORT INFORMATION
  Report Type: Spontaneous
  Country: US (occurrence: US)
  Receive Date: 20171219
  Receipt Date: 20171219
  Transmission Date: 20180321
  Serious: Yes (Hospitalization, Other)
  Sender: FDA-Public Use
  Company Number: US-OTSUKA-12315826

PATIENT
  Age: 44 Year
  Sex: Female

DRUGS (3)
  1. FLUPHENAZINE HYDROCHLORIDE. [Concomitant]
     Active Substance: FLUPHENAZINE HYDROCHLORIDE
     Indication: PRODUCT USED FOR UNKNOWN INDICATION
     Dosage: 5 MG, BID (22-MAY-2003: DOSE REDUCED TO 5 MG/DAY)
     Route: 065
     Dates: end: 20030619
  2. ABILIFY [Suspect]
     Active Substance: ARIPIPRAZOLE
     Indication: SCHIZOPHRENIA
     Dosage: 15 MG, QD (STARTED IN DEC-02, DISCONTINUED AFTER 2 WEEKS.  RESTARTED ON 25-MAR-03, THEN DISCONTINED)
     Route: 048
     Dates: start: 200212, end: 20030626
  3. COGENTIN [Concomitant]
     Active Substance: BENZTROPINE MESYLATE
     Indication: PRODUCT USED FOR UNKNOWN INDICATION
     Dosage: UNK
     Route: 065
     Dates: end: 20030619

REACTIONS (6)
  - Increased tendency to bruise [Unknown]
  - Immune thrombocytopenic purpura [Unknown]
  - Iron deficiency anaemia [Recovered/Resolved]
  - Vaginal haemorrhage [Unknown]
  - Rash [Unknown]
  - Vision blurred [Recovered/Resolved]

NARRATIVE: CASE EVENT DATE: 200212
